FAERS Safety Report 6040283-8 (Version None)
Quarter: 2009Q1

REPORT INFORMATION
  Report Type: 
  Country: None (occurrence: None)
  Receive Date: 20090116
  Receipt Date: 20080206
  Transmission Date: 20090719
  Serious: No
  Sender: FDA-Public Use
  Company Number: US-BRISTOL-MYERS SQUIBB COMPANY-14067136

PATIENT
  Age: 32 Year
  Sex: Female

DRUGS (4)
  1. ABILIFY [Suspect]
     Route: 048
  2. SEROQUEL [Concomitant]
  3. DEPAKOTE [Concomitant]
  4. AMBIEN [Concomitant]

REACTIONS (1)
  - HYPERSENSITIVITY [None]
